FAERS Safety Report 6088850-X (Version None)
Quarter: 2009Q1

REPORT INFORMATION
  Report Type: 
  Country: None (occurrence: None)
  Receive Date: 20090224
  Receipt Date: 20090216
  Transmission Date: 20090719
  Serious: Yes (Other)
  Sender: FDA-Public Use
  Company Number: PHHY2008DE28218

PATIENT
  Age: 62 Year
  Sex: Female

DRUGS (2)
  1. ACLASTA [Suspect]
     Indication: OSTEOPOROSIS
     Dosage: 5 MG, UNK
     Route: 042
  2. CALCIGEN D [Concomitant]
     Indication: OSTEOPOROSIS
     Dosage: COLECALCIFER OF 400 IU, 600 MG CALCIUM
     Route: 048
     Dates: start: 20070501

REACTIONS (1)
  - BONE DENSITY DECREASED [None]
